FAERS Safety Report 18704688 (Version 1)
Quarter: 2021Q1

REPORT INFORMATION
  Report Type: Spontaneous
  Country: US (occurrence: US)
  Receive Date: 20210106
  Receipt Date: 20210106
  Transmission Date: 20210419
  Serious: Yes (Hospitalization)
  Sender: FDA-Public Use
  Company Number: US-AUROBINDO-AUR-APL-2012-00573

PATIENT
  Age: 48 Year
  Sex: Male

DRUGS (3)
  1. CIPROFLOXACIN. [Suspect]
     Active Substance: CIPROFLOXACIN
     Indication: GASTROINTESTINAL DISORDER
     Dosage: UNK
     Route: 065
  2. SUCRALFATE. [Suspect]
     Active Substance: SUCRALFATE
     Indication: GASTROINTESTINAL DISORDER
     Dosage: UNK
     Route: 016
  3. METRONIDAZOLE. [Suspect]
     Active Substance: METRONIDAZOLE
     Indication: GASTROINTESTINAL DISORDER
     Dosage: UNK
     Route: 065

REACTIONS (8)
  - Hypersensitivity vasculitis [Recovered/Resolved]
  - Joint swelling [Recovered/Resolved]
  - Scrotal pain [Recovered/Resolved]
  - Blister [Recovered/Resolved]
  - Scrotal erythema [Recovered/Resolved]
  - Palpable purpura [Recovered/Resolved]
  - Scrotal oedema [Recovered/Resolved]
  - Tenderness [Recovered/Resolved]
